FAERS Safety Report 24722163 (Version 1)
Quarter: 2024Q4

REPORT INFORMATION
  Report Type: Spontaneous
  Country: US (occurrence: None)
  Receive Date: 20241210
  Receipt Date: 20241210
  Transmission Date: 20250114
  Serious: Yes (Hospitalization)
  Sender: Public
  Company Number: None

PATIENT
  Age: 96 Year
  Sex: Male
  Weight: 65 kg

DRUGS (1)
  1. METHADONE HYDROCHLORIDE [Suspect]
     Active Substance: METHADONE HYDROCHLORIDE
     Indication: Pain
     Dates: start: 20220111, end: 20220301

REACTIONS (8)
  - Agitation [None]
  - Confusional state [None]
  - Hallucination [None]
  - Paranoia [None]
  - Abnormal behaviour [None]
  - Aggression [None]
  - Mental status changes [None]
  - Delirium [None]

NARRATIVE: CASE EVENT DATE: 20220301
